FAERS Safety Report 15534033 (Version 2)
Quarter: 2019Q1

REPORT INFORMATION
  Report Type: Spontaneous
  Country: JP (occurrence: JP)
  Receive Date: 20181019
  Receipt Date: 20190103
  Transmission Date: 20190417
  Serious: Yes (Hospitalization)
  Sender: FDA-Public Use
  Company Number: JP-ASTRAZENECA-2018SF35685

PATIENT
  Age: 83 Year
  Sex: Female
  Weight: 46 kg

DRUGS (8)
  1. FAMOTIDINE. [Concomitant]
     Active Substance: FAMOTIDINE
     Dosage: DOSE UNKNOWN
     Route: 065
  2. TAGRISSO [Suspect]
     Active Substance: OSIMERTINIB
     Indication: NON-SMALL CELL LUNG CANCER
     Route: 048
     Dates: start: 20180828, end: 20180904
  3. TAGRISSO [Suspect]
     Active Substance: OSIMERTINIB
     Indication: NON-SMALL CELL LUNG CANCER
     Dosage: 40 MG, MONDAYS, WEDNESDAYS, AND FRIDAYS
     Route: 048
     Dates: start: 20180905, end: 20180920
  4. NAIXAN [Concomitant]
     Active Substance: NAPROXEN SODIUM
     Dosage: DOSE UNKNOWN
     Route: 065
     Dates: start: 20180827
  5. TALION [Concomitant]
     Dosage: DOSE UNKNOWN
     Route: 065
  6. TAGRISSO [Suspect]
     Active Substance: OSIMERTINIB
     Indication: NON-SMALL CELL LUNG CANCER
     Route: 048
     Dates: start: 20180823, end: 20180827
  7. MECOBALAMIN [Concomitant]
     Active Substance: METHYLCOBALAMIN
     Dosage: DOSE UNKNOWN
     Route: 065
  8. ADETPHOS [Concomitant]
     Active Substance: ADENOSINE TRIPHOSPHATE
     Dosage: DOSE UNKNOWN
     Route: 048

REACTIONS (2)
  - Off label use [Unknown]
  - Interstitial lung disease [Not Recovered/Not Resolved]

NARRATIVE: CASE EVENT DATE: 20180920
